FAERS Safety Report 21515479 (Version 1)
Quarter: 2022Q4

REPORT INFORMATION
  Report Type: Spontaneous
  Country: US (occurrence: None)
  Receive Date: 20221027
  Receipt Date: 20221027
  Transmission Date: 20230113
  Serious: Yes (Disabling)
  Sender: FDA-Public Use
  Company Number: None

PATIENT
  Age: 79 Year
  Sex: Female
  Weight: 60.3 kg

DRUGS (1)
  1. ALENDRONATE SODIUM [Suspect]
     Active Substance: ALENDRONATE SODIUM
     Indication: Bone loss
     Dosage: OTHER QUANTITY : 1 TABLET(S);?OTHER FREQUENCY : ONCE A WEEK;?
     Route: 048
     Dates: start: 19220401, end: 19220917

REACTIONS (5)
  - Pain [None]
  - Bone pain [None]
  - Myalgia [None]
  - Movement disorder [None]
  - Loss of personal independence in daily activities [None]

NARRATIVE: CASE EVENT DATE: 19220401
